FAERS Safety Report 24224278 (Version 1)
Quarter: 2024Q3

REPORT INFORMATION
  Report Type: Spontaneous
  Country: US (occurrence: None)
  Receive Date: 20240818
  Receipt Date: 20240818
  Transmission Date: 20241017
  Serious: Yes (Life-Threatening)
  Sender: Public
  Company Number: None

PATIENT
  Age: 43 Year
  Sex: Male
  Weight: 166.5 kg

DRUGS (3)
  1. ESCITALOPRAM [Suspect]
     Active Substance: ESCITALOPRAM OXALATE
     Indication: Anxiety
     Dates: start: 20240718, end: 20240818
  2. DOXYCYCLINE [Concomitant]
  3. clyndamyacin [Concomitant]

REACTIONS (12)
  - Aggression [None]
  - Eye pain [None]
  - Electric shock sensation [None]
  - Dizziness [None]
  - Disturbance in attention [None]
  - Memory impairment [None]
  - Paraesthesia [None]
  - Hypoaesthesia [None]
  - Hypoaesthesia [None]
  - Bradycardia [None]
  - Throat tightness [None]
  - Dehydration [None]

NARRATIVE: CASE EVENT DATE: 20240813
